FAERS Safety Report 21729200 (Version 1)
Quarter: 2022Q4

REPORT INFORMATION
  Report Type: Report from Study
  Country: US (occurrence: US)
  Receive Date: 20221214
  Receipt Date: 20221214
  Transmission Date: 20230113
  Serious: No
  Sender: FDA-Public Use
  Company Number: US-ABBVIE-22K-163-4495768-00

PATIENT
  Age: 74 Year
  Sex: Male
  Weight: 106.59 kg

DRUGS (20)
  1. RINVOQ [Suspect]
     Active Substance: UPADACITINIB
     Indication: Rheumatoid arthritis
     Dosage: 7 DAYS A WEEK
     Route: 048
     Dates: start: 20220410, end: 2022
  2. RINVOQ [Suspect]
     Active Substance: UPADACITINIB
     Indication: Rheumatoid arthritis
     Dosage: 3 DAYS A WEEK
     Route: 048
     Dates: start: 20220715
  3. SYNTHROID [Concomitant]
     Active Substance: LEVOTHYROXINE SODIUM
     Indication: Product used for unknown indication
  4. PFIZER-BIONTECH COVID-19 VACCINE [Concomitant]
     Active Substance: TOZINAMERAN
     Indication: COVID-19 immunisation
     Dosage: TIME INTERVAL: 1 TOTAL
     Route: 030
  5. PFIZER-BIONTECH COVID-19 VACCINE [Concomitant]
     Active Substance: TOZINAMERAN
     Indication: COVID-19 immunisation
     Dosage: TIME INTERVAL: 1 TOTAL: BOOSTER DOSE
     Route: 030
  6. COREG [Concomitant]
     Active Substance: CARVEDILOL
     Indication: Product used for unknown indication
     Dosage: 25 MG PER DAY
     Route: 048
  7. IC Albuteral Sul 2.5mg/3mil soln [Concomitant]
     Indication: Product used for unknown indication
  8. ASPIRIN [Concomitant]
     Active Substance: ASPIRIN
     Indication: Product used for unknown indication
     Dates: start: 202206
  9. SYSTANE I DROP R + L as needed [Concomitant]
     Indication: Product used for unknown indication
  10. PROAIR HFA-RESCUE INHALER [Concomitant]
     Indication: Product used for unknown indication
     Dosage: 2 PUFF AS NEEDED
  11. Torsemide (Demadex) [Concomitant]
     Indication: Product used for unknown indication
     Dates: start: 20220202
  12. TRELEGYELIPTA 100/62.5/25 MCG/IMH [Concomitant]
     Indication: Product used for unknown indication
     Dosage: 1 PUFF
  13. FOLIC ACID [Concomitant]
     Active Substance: FOLIC ACID
     Indication: Product used for unknown indication
  14. Eliquis (Apixabam) [Concomitant]
     Indication: Product used for unknown indication
  15. ALLOPURINAL (ZYLOPRIM) [Concomitant]
     Indication: Product used for unknown indication
  16. BETAMETHASONE [Concomitant]
     Active Substance: BETAMETHASONE
     Indication: Product used for unknown indication
  17. PRILOSEC [Concomitant]
     Active Substance: OMEPRAZOLE MAGNESIUM
     Indication: Product used for unknown indication
  18. LIPITOR [Concomitant]
     Active Substance: ATORVASTATIN CALCIUM
     Indication: Product used for unknown indication
     Route: 048
  19. multivitamin 1 tab qd [Concomitant]
     Indication: Product used for unknown indication
  20. TYLENOL [Concomitant]
     Active Substance: ACETAMINOPHEN
     Indication: Product used for unknown indication
     Dosage: 1 OR 2 TABS AS NEEDED 3000MG MAX/DAY

REACTIONS (1)
  - Dermatitis [Recovering/Resolving]

NARRATIVE: CASE EVENT DATE: 20220501
